FAERS Safety Report 6661945-5 (Version None)
Quarter: 2010Q1

REPORT INFORMATION
  Report Type: 
  Country: None (occurrence: None)
  Receive Date: 20100331
  Receipt Date: 20091020
  Transmission Date: 20100710
  Serious: No
  Sender: FDA-Public Use
  Company Number: US-BRISTOL-MYERS SQUIBB COMPANY-14823868

PATIENT
  Age: 75 Year
  Sex: Female

DRUGS (2)
  1. ERBITUX [Suspect]
     Indication: LARYNGEAL CANCER STAGE III
  2. RADIATION THERAPY [Suspect]
     Indication: LARYNGEAL CANCER STAGE III

REACTIONS (2)
  - PRURITUS [None]
  - SKIN EXFOLIATION [None]
